FAERS Safety Report 6207821-3 (Version None)
Quarter: 2009Q2

REPORT INFORMATION
  Report Type: 
  Country: None (occurrence: None)
  Receive Date: 20090522
  Receipt Date: 20090511
  Transmission Date: 20091009
  Serious: Yes (Other)
  Sender: FDA-Public Use
  Company Number: 2009-01372

PATIENT
  Age: 51 Year
  Sex: Male
  Weight: 75 kg

DRUGS (11)
  1. VELCADE [Suspect]
     Indication: MULTIPLE MYELOMA
     Dosage: 1.3 MG/M2, INTRAVENOUS
     Route: 042
     Dates: start: 20090209, end: 20090301
  2. DEXAMETHASONE [Concomitant]
  3. ADRIAMYCIN RDF [Concomitant]
  4. OMEPRAZOLE [Concomitant]
  5. ALLOPURINOL [Concomitant]
  6. ANALGESICS [Concomitant]
  7. ACETAMINOPHEN [Concomitant]
  8. ONDANSETRON HCL [Concomitant]
  9. METOCLOPRAMIDE [Concomitant]
  10. ACYCLOVIR [Concomitant]
  11. CLODRONATE DISODIUM (CLODRONATE DISODIUM) [Concomitant]

REACTIONS (1)
  - DIARRHOEA [None]
